FAERS Safety Report 7760899-8 (Version None)
Quarter: 2011Q3

REPORT INFORMATION
  Report Type: 
  Country: None (occurrence: None)
  Receive Date: 20110919
  Receipt Date: 20110909
  Transmission Date: 20111222
  Serious: Yes (Hospitalization, Other)
  Sender: FDA-Public Use
  Company Number: US-MERCK-1106USA00664

PATIENT
  Age: 68 Year
  Sex: Female

DRUGS (10)
  1. FOSAMAX [Suspect]
     Indication: OSTEOPOROSIS
     Route: 048
     Dates: start: 20020101, end: 20090601
  2. ASCORBIC ACID [Concomitant]
     Route: 065
     Dates: start: 19990101, end: 20110701
  3. CALCIUM (UNSPECIFIED) AND VITAMINS (UNSPECIFIED) [Concomitant]
     Route: 065
     Dates: start: 19990101, end: 20110701
  4. LEVOXYL [Concomitant]
     Indication: THYROID DISORDER
     Route: 065
     Dates: start: 20010101, end: 20110701
  5. RECLAST [Concomitant]
     Indication: OSTEOPOROSIS
     Route: 048
     Dates: start: 20100101, end: 20101001
  6. CORTICOSTEROIDS (UNSPECIFIED) [Concomitant]
     Route: 065
     Dates: start: 20090101, end: 20090801
  7. ALENDRONATE SODIUM [Suspect]
     Indication: OSTEOPOROSIS
     Route: 048
     Dates: start: 20091201, end: 20100501
  8. FOSAMAX [Suspect]
     Route: 048
     Dates: start: 20020101
  9. CRANBERRY [Concomitant]
     Route: 065
     Dates: start: 19990101, end: 20110701
  10. ACIPHEX [Concomitant]
     Route: 065
     Dates: start: 19990101, end: 20090101

REACTIONS (11)
  - ARTHROPATHY [None]
  - ARTHRITIS [None]
  - URINARY TRACT INFECTION [None]
  - CYSTITIS [None]
  - ARTERIOSCLEROSIS [None]
  - GALLBLADDER DISORDER [None]
  - THYROID DISORDER [None]
  - SPINAL OSTEOARTHRITIS [None]
  - FALL [None]
  - FEMUR FRACTURE [None]
  - SPINAL COMPRESSION FRACTURE [None]
